FAERS Safety Report 6248031-3 (Version None)
Quarter: 2009Q2

REPORT INFORMATION
  Report Type: 
  Country: None (occurrence: None)
  Receive Date: 20090626
  Receipt Date: 20090612
  Transmission Date: 20091009
  Serious: Yes (Other)
  Sender: FDA-Public Use
  Company Number: NO-MERCK-0906NOR00001

PATIENT
  Age: 10 Year
  Sex: Female

DRUGS (1)
  1. SINGULAIR [Suspect]
     Indication: ASTHMA
     Route: 048
     Dates: start: 20081118, end: 20090106

REACTIONS (3)
  - NIGHTMARE [None]
  - VISUAL FIELD DEFECT [None]
  - VISUAL IMPAIRMENT [None]
